FAERS Safety Report 12697916 (Version 1)
Quarter: 2016Q3

REPORT INFORMATION
  Report Type: Spontaneous
  Country: FR (occurrence: FR)
  Receive Date: 20160830
  Receipt Date: 20160830
  Transmission Date: 20161109
  Serious: Yes (Hospitalization)
  Sender: FDA-Public Use
  Company Number: FR-PFIZER INC-2016399195

PATIENT
  Age: 40 Year
  Sex: Female

DRUGS (1)
  1. RELPAX [Suspect]
     Active Substance: ELETRIPTAN HYDROBROMIDE
     Dosage: 1 DF, DAILY (APPROXIMATELY 25 DAYS PER MONTH)
     Route: 048
     Dates: start: 2015

REACTIONS (2)
  - Drug dependence [Unknown]
  - Product use issue [Unknown]
